FAERS Safety Report 5023116-8 (Version None)
Quarter: 2006Q2

REPORT INFORMATION
  Report Type: 
  Country: None (occurrence: None)
  Receive Date: 20060612
  Receipt Date: 20060530
  Transmission Date: 20061013
  Serious: Yes (Other)
  Sender: FDA-Public Use
  Company Number: JP-BRACCO-BRO-010180

PATIENT
  Sex: Male
  Weight: 60 kg

DRUGS (2)
  1. IOPAMIRON [Suspect]
     Indication: PROSTATE CANCER
     Dosage: 1ML/SEC
     Route: 042
     Dates: start: 20060512, end: 20060512
  2. IOPAMIRON [Suspect]
     Dosage: 1ML/SEC
     Route: 042
     Dates: start: 20060512, end: 20060512

REACTIONS (7)
  - ANAPHYLACTOID REACTION [None]
  - BLOOD PRESSURE DECREASED [None]
  - FAECAL INCONTINENCE [None]
  - FEELING ABNORMAL [None]
  - NAUSEA [None]
  - URINARY INCONTINENCE [None]
  - VOMITING [None]
